FAERS Safety Report 20550567 (Version 2)
Quarter: 2022Q3

REPORT INFORMATION
  Report Type: Spontaneous
  Country: FR (occurrence: FR)
  Receive Date: 20220304
  Receipt Date: 20220923
  Transmission Date: 20221027
  Serious: Yes (Other)
  Sender: FDA-Public Use
  Company Number: None

PATIENT
  Age: 78 Year
  Sex: Female

DRUGS (6)
  1. PANTOPRAZOLE [Suspect]
     Active Substance: PANTOPRAZOLE
     Indication: Gastrooesophageal reflux disease
     Dosage: 20 MG, QD
     Route: 048
     Dates: start: 20210929, end: 20211007
  2. IOMERON [Suspect]
     Active Substance: IOMEPROL
     Indication: Angiocardiogram
     Dosage: 106 ML (2 TOTAL, 2X106ML) (STRENGTH: 350 MG IODE/ML)
     Route: 042
     Dates: start: 20210928, end: 20211007
  3. LOVENOX [Concomitant]
     Active Substance: ENOXAPARIN SODIUM
     Indication: Thrombosis prophylaxis
     Dosage: 1 DOSAGE FORM, QD (STRENGTH: 4000 UI ANTI-XA/0.4 ML)
     Route: 058
     Dates: start: 20211007
  4. ISOSORBIDE [Concomitant]
     Active Substance: ISOSORBIDE
     Indication: Angiocardiogram
     Dosage: 1 MG, ONCE/SINGLE
     Route: 042
     Dates: start: 20211007, end: 20211007
  5. VERAPAMIL HYDROCHLORIDE [Concomitant]
     Active Substance: VERAPAMIL HYDROCHLORIDE
     Indication: Angiocardiogram
     Dosage: 2.5 MG, ONCE/SINGLE
     Route: 042
     Dates: start: 20211007, end: 20211007
  6. HEPARIN [Concomitant]
     Active Substance: HEPARIN SODIUM
     Indication: Anticoagulant therapy
     Dosage: 5000 IU, ONCE/SINGLE
     Route: 042
     Dates: start: 20211007, end: 20211007

REACTIONS (1)
  - Toxic skin eruption [Recovered/Resolved]

NARRATIVE: CASE EVENT DATE: 20211008
